FAERS Safety Report 6149295-7 (Version None)
Quarter: 2009Q2

REPORT INFORMATION
  Report Type: 
  Country: None (occurrence: None)
  Receive Date: 20090406
  Receipt Date: 20090406
  Transmission Date: 20091009
  Serious: Yes (Other)
  Sender: FDA-Public Use
  Company Number: None

PATIENT
  Age: 36 Year
  Sex: Female
  Weight: 72.5755 kg

DRUGS (1)
  1. MYOBLOC [Suspect]
     Indication: MUSCLE SPASMS
     Dosage: 5000 U/1 VIAL IM
     Route: 030
     Dates: start: 20090216, end: 20090216

REACTIONS (9)
  - APTYALISM [None]
  - DRY MOUTH [None]
  - DYSGEUSIA [None]
  - HYPOPHAGIA [None]
  - LACRIMATION DECREASED [None]
  - ORAL FUNGAL INFECTION [None]
  - SALIVARY GLAND DISORDER [None]
  - SCAB [None]
  - STOMATITIS [None]
